FAERS Safety Report 19027261 (Version 1)
Quarter: 2021Q1

REPORT INFORMATION
  Report Type: Spontaneous
  Country: US (occurrence: US)
  Receive Date: 20210318
  Receipt Date: 20210318
  Transmission Date: 20210420
  Serious: Yes (Other)
  Sender: FDA-Public Use
  Company Number: US-INTRA-CELLULAR THERAPIES, INC.-2021ICT00131

PATIENT
  Sex: Male

DRUGS (6)
  1. PRISTIQ EXTENDED?RELEASE [Concomitant]
     Active Substance: DESVENLAFAXINE SUCCINATE
  2. CAPLYTA [Suspect]
     Active Substance: LUMATEPERONE
     Dosage: 42 MG, 1X/DAY
     Dates: start: 202010, end: 20210124
  3. VRAYLAR [Concomitant]
     Active Substance: CARIPRAZINE
  4. DULOXETINE HCL [Concomitant]
     Active Substance: DULOXETINE HYDROCHLORIDE
  5. REXULTI [Concomitant]
     Active Substance: BREXPIPRAZOLE
  6. DESVENLAFAXINE ER [Concomitant]
     Active Substance: DESVENLAFAXINE

REACTIONS (1)
  - Hallucination, auditory [Recovered/Resolved]
